FAERS Safety Report 9255827 (Version 2)
Quarter: 2013Q2

REPORT INFORMATION
  Report Type: Spontaneous
  Country: US (occurrence: US)
  Receive Date: 20130425
  Receipt Date: 20130522
  Transmission Date: 20140414
  Serious: Yes (Other)
  Sender: FDA-Public Use
  Company Number: US-ELI_LILLY_AND_COMPANY-US201211000644

PATIENT
  Age: 82 Year
  Sex: Female
  Weight: 43.54 kg

DRUGS (7)
  1. FORTEO [Suspect]
     Indication: OSTEOPOROSIS
     Dosage: 20 UG, QD
     Route: 058
     Dates: start: 201205
  2. FORTEO [Suspect]
     Dosage: 20 UG, QD
     Route: 058
  3. RAMIPRIL [Concomitant]
     Dosage: 5 MG, QD
  4. EVISTA [Concomitant]
     Dosage: 60 MG, QD
  5. PROAIR [Concomitant]
     Route: 055
  6. CALCIUM [Concomitant]
     Dosage: 600 MG, BID
  7. VITAMIN D [Concomitant]
     Dosage: 1000 IU, QD

REACTIONS (4)
  - Pancreatic cyst [Unknown]
  - Muscular weakness [Recovering/Resolving]
  - Anxiety [Unknown]
  - Blood pressure increased [Recovering/Resolving]
